FAERS Safety Report 10342896 (Version 2)
Quarter: 2014Q3

REPORT INFORMATION
  Report Type: Spontaneous
  Country: PL (occurrence: PL)
  Receive Date: 20140725
  Receipt Date: 20140818
  Transmission Date: 20150326
  Serious: Yes (Hospitalization)
  Sender: FDA-Public Use
  Company Number: PL-B.I. PHARMACEUTICALS,INC./RIDGEFIELD-2014-BI-33912PN

PATIENT
  Age: 64 Year
  Sex: Female

DRUGS (8)
  1. TORAMIDE [Concomitant]
     Dosage: 10 MG
     Route: 048
  2. CLEXANE [Concomitant]
     Active Substance: ENOXAPARIN SODIUM
     Dosage: 60 MG
     Route: 058
     Dates: start: 20140718
  3. CONTROLOC [Concomitant]
     Active Substance: PANTOPRAZOLE SODIUM
     Dosage: 40 MG
     Route: 048
  4. ACARD [Concomitant]
     Active Substance: ASPIRIN
     Dosage: 75 MG
     Route: 048
  5. OPACORDEN [Concomitant]
     Dosage: 200 MG
     Route: 048
     Dates: start: 201404, end: 20140713
  6. SPIRONOL [Concomitant]
     Active Substance: SPIRONOLACTONE
     Dosage: 25 MG
     Route: 048
  7. BETALOC ZOC [Concomitant]
     Dosage: 100 MG
     Route: 048
  8. PRADAXA [Suspect]
     Active Substance: DABIGATRAN ETEXILATE MESYLATE
     Indication: ATRIAL FIBRILLATION
     Dosage: 300 MG
     Route: 048
     Dates: start: 20140610, end: 20140709

REACTIONS (5)
  - Drug-induced liver injury [Not Recovered/Not Resolved]
  - Thrombocytopenia [Not Recovered/Not Resolved]
  - Hypertransaminasaemia [Not Recovered/Not Resolved]
  - Dyspepsia [Not Recovered/Not Resolved]
  - Hyperbilirubinaemia [Not Recovered/Not Resolved]

NARRATIVE: CASE EVENT DATE: 20140710
